FAERS Safety Report 17271830 (Version 1)
Quarter: 2020Q1

REPORT INFORMATION
  Report Type: Spontaneous
  Country: PK (occurrence: PK)
  Receive Date: 20200115
  Receipt Date: 20200115
  Transmission Date: 20200409
  Serious: Yes (Death, Other)
  Sender: FDA-Public Use
  Company Number: PK-IPCA LABORATORIES LIMITED-IPC-2020-PK-000006

PATIENT

DRUGS (2)
  1. METFORMIN [Suspect]
     Active Substance: METFORMIN HYDROCHLORIDE
     Indication: GESTATIONAL DIABETES
     Dosage: 500 MILLIGRAM, BID
     Route: 065
  2. METFORMIN [Suspect]
     Active Substance: METFORMIN HYDROCHLORIDE
     Dosage: 2500 MILLIGRAM, QD
     Route: 065

REACTIONS (2)
  - Foetal death [Fatal]
  - Maternal exposure during pregnancy [Unknown]
